FAERS Safety Report 24422659 (Version 1)
Quarter: 2024Q4

REPORT INFORMATION
  Report Type: Spontaneous
  Country: US (occurrence: None)
  Receive Date: 20241009
  Receipt Date: 20241009
  Transmission Date: 20250115
  Serious: No
  Sender: Public
  Company Number: None

PATIENT
  Age: 61 Year
  Sex: Male

DRUGS (1)
  1. TASIGNA [Suspect]
     Active Substance: NILOTINIB
     Indication: Chronic myeloid leukaemia
     Dosage: FREQUENCY : TWICE A DAY;?
     Route: 048
     Dates: start: 20241003

REACTIONS (5)
  - Fatigue [None]
  - Loss of personal independence in daily activities [None]
  - Arthralgia [None]
  - Myalgia [None]
  - Heart rate abnormal [None]

NARRATIVE: CASE EVENT DATE: 20241009
